FAERS Safety Report 24938032 (Version 2)
Quarter: 2025Q1

REPORT INFORMATION
  Report Type: Spontaneous
  Country: US (occurrence: US)
  Receive Date: 20250206
  Receipt Date: 20250210
  Transmission Date: 20250409
  Serious: No
  Sender: ELI LILLY AND COMPANY
  Company Number: US-ELI_LILLY_AND_COMPANY-US202502003682

PATIENT
  Age: 62 Year
  Sex: Female

DRUGS (6)
  1. TRULICITY [Suspect]
     Active Substance: DULAGLUTIDE
     Indication: Glucose tolerance impaired
     Route: 058
     Dates: start: 202404
  2. TRULICITY [Suspect]
     Active Substance: DULAGLUTIDE
     Indication: Glucose tolerance impaired
     Route: 058
     Dates: start: 202404
  3. TRULICITY [Suspect]
     Active Substance: DULAGLUTIDE
     Route: 058
  4. TRULICITY [Suspect]
     Active Substance: DULAGLUTIDE
     Route: 058
  5. TRULICITY [Suspect]
     Active Substance: DULAGLUTIDE
     Route: 058
  6. TRULICITY [Suspect]
     Active Substance: DULAGLUTIDE
     Route: 058

REACTIONS (4)
  - Off label use [Unknown]
  - Incorrect dose administered [Unknown]
  - Constipation [Unknown]
  - Diarrhoea [Unknown]
